FAERS Safety Report 11104497 (Version 3)
Quarter: 2015Q3

REPORT INFORMATION
  Report Type: Spontaneous
  Country: JP (occurrence: JP)
  Receive Date: 20150511
  Receipt Date: 20150811
  Transmission Date: 20151125
  Serious: Yes (Hospitalization, Other)
  Sender: FDA-Public Use
  Company Number: PHJP2015JP007214

PATIENT
  Age: 65 Year
  Sex: Male
  Weight: 72 kg

DRUGS (1)
  1. LAMISIL TAB [Suspect]
     Active Substance: TERBINAFINE HYDROCHLORIDE
     Indication: TINEA INFECTION
     Dosage: 125 MG, QD
     Route: 048
     Dates: start: 20120820, end: 20120919

REACTIONS (12)
  - Dysaesthesia [Recovered/Resolved]
  - Pyrexia [Unknown]
  - Guillain-Barre syndrome [Recovering/Resolving]
  - VIIth nerve paralysis [Recovered/Resolved]
  - Inappropriate antidiuretic hormone secretion [Unknown]
  - Hyponatraemia [Recovering/Resolving]
  - Dyslalia [Recovered/Resolved]
  - Ataxia [Recovered/Resolved]
  - Malaise [Unknown]
  - Headache [Unknown]
  - Paraesthesia [Recovered/Resolved]
  - Hepatitis acute [Recovering/Resolving]

NARRATIVE: CASE EVENT DATE: 20120912
